FAERS Safety Report 7960532-6 (Version None)
Quarter: 2011Q4

REPORT INFORMATION
  Report Type: 
  Country: None (occurrence: None)
  Receive Date: 20111206
  Receipt Date: 20111202
  Transmission Date: 20120403
  Serious: Yes (Hospitalization, Other)
  Sender: FDA-Public Use
  Company Number: DE-ABBOTT-10P-062-0665867-00

PATIENT
  Sex: Male
  Weight: 50 kg

DRUGS (12)
  1. BUDESONIDE [Concomitant]
     Indication: PRODUCT USED FOR UNKNOWN INDICATION
  2. PREDNISONE TAB [Concomitant]
     Indication: PRODUCT USED FOR UNKNOWN INDICATION
  3. PREDNISOLONE [Suspect]
     Route: 048
     Dates: start: 20100401
  4. AZATHIOPRINE [Suspect]
     Indication: CROHN'S DISEASE
     Route: 048
     Dates: start: 20090901, end: 20100730
  5. COTRIM [Concomitant]
     Indication: INFECTION PROPHYLAXIS
     Dates: start: 20100709
  6. AZATHIOPRINE [Suspect]
     Dates: start: 20080601
  7. NOVAMINSULFON [Concomitant]
     Indication: PRODUCT USED FOR UNKNOWN INDICATION
  8. PREDNISOLONE [Suspect]
     Indication: CROHN'S DISEASE
     Dosage: 20 MG OD
     Route: 048
     Dates: start: 20100701, end: 20100730
  9. HUMIRA [Suspect]
     Indication: CROHN'S DISEASE
     Route: 058
     Dates: start: 20100709, end: 20111001
  10. 5-ASA-SULFASALAZIM [Concomitant]
     Indication: PRODUCT USED FOR UNKNOWN INDICATION
  11. AZATHIOPRINE [Concomitant]
     Indication: PRODUCT USED FOR UNKNOWN INDICATION
  12. CORTISOL [Concomitant]
     Indication: PRODUCT USED FOR UNKNOWN INDICATION

REACTIONS (7)
  - PROCTITIS [None]
  - ANAL FISSURE [None]
  - CROHN'S DISEASE [None]
  - HEPARIN-INDUCED THROMBOCYTOPENIA [None]
  - RECTAL ABSCESS [None]
  - ANAL FISTULA [None]
  - PERIRECTAL ABSCESS [None]
